FAERS Safety Report 22279643 (Version 1)
Quarter: 2023Q2

REPORT INFORMATION
  Report Type: Spontaneous
  Country: CN (occurrence: CN)
  Receive Date: 20230503
  Receipt Date: 20230503
  Transmission Date: 20230721
  Serious: Yes (Hospitalization)
  Sender: FDA-Public Use
  Company Number: CN-JNJFOC-20230450827

PATIENT
  Age: 85 Year
  Sex: Female
  Weight: 45 kg

DRUGS (1)
  1. RISPERDAL [Suspect]
     Active Substance: RISPERIDONE
     Indication: Mania
     Route: 048
     Dates: start: 20230331, end: 20230331

REACTIONS (8)
  - Altered state of consciousness [Recovering/Resolving]
  - Pneumonia [Recovering/Resolving]
  - Cardiac failure [Recovering/Resolving]
  - Sinus bradycardia [Recovering/Resolving]
  - Atrioventricular block [Recovering/Resolving]
  - Bundle branch block right [Recovering/Resolving]
  - Electrocardiogram QT prolonged [Recovering/Resolving]
  - Acute myocardial infarction [Recovering/Resolving]

NARRATIVE: CASE EVENT DATE: 20230331
